FAERS Safety Report 16720772 (Version 1)
Quarter: 2019Q3

REPORT INFORMATION
  Report Type: Spontaneous
  Country: US (occurrence: US)
  Receive Date: 20190702
  Receipt Date: 20190702
  Transmission Date: 20191005
  Serious: Yes (Other)
  Sender: FDA-Public Use
  Company Number: None

PATIENT
  Age: 83 Year
  Sex: Female
  Weight: 63.5 kg

DRUGS (15)
  1. VITAMIN E WATER DISPERSIBLE [Concomitant]
  2. LUTEIN [Concomitant]
     Active Substance: LUTEIN
  3. OXYBUTYNIN ER [Concomitant]
     Active Substance: OXYBUTYNIN
  4. METOPROLOL TAB 25MG [Suspect]
     Active Substance: METOPROLOL
     Indication: ATRIAL FIBRILLATION
     Dosage: ?          QUANTITY:1-2;?
     Route: 048
     Dates: start: 20190128, end: 20190407
  5. JANUVIA [Concomitant]
     Active Substance: SITAGLIPTIN PHOSPHATE
  6. TRAZADONE HCL [Concomitant]
     Active Substance: TRAZODONE HYDROCHLORIDE
  7. ONE A DAY PROACTIVE 65+ [Concomitant]
  8. METOPROLOL TARTRATE. [Concomitant]
     Active Substance: METOPROLOL TARTRATE
  9. TAMSULOSIN [Concomitant]
     Active Substance: TAMSULOSIN
  10. CLOPIDOGREL [Concomitant]
     Active Substance: CLOPIDOGREL BISULFATE
  11. ATORVASTATIN [Concomitant]
     Active Substance: ATORVASTATIN
  12. DESMOPRESSIN [Suspect]
     Active Substance: DESMOPRESSIN
  13. WARFARIN [Concomitant]
     Active Substance: WARFARIN
  14. MEGARED OMEGA 3 [Concomitant]
  15. VITAMIN C TIME RELEASE [Concomitant]

REACTIONS (3)
  - Product dispensing error [None]
  - Product label on wrong product [None]
  - Wrong product administered [None]

NARRATIVE: CASE EVENT DATE: 20190128
